FAERS Safety Report 9076259 (Version 1)
Quarter: 2013Q1

REPORT INFORMATION
  Report Type: Spontaneous
  Country: US (occurrence: US)
  Receive Date: 20130129
  Receipt Date: 20130129
  Transmission Date: 20140127
  Serious: No
  Sender: FDA-Public Use
  Company Number: US-ABBOTT-12P-163-0926483-00

PATIENT
  Sex: Female
  Weight: 59.93 kg

DRUGS (1)
  1. HUMIRA 40 MG/ 0.8 ML PRE-FILLED SYRINGE [Suspect]
     Indication: CROHN^S DISEASE
     Dates: start: 20110510, end: 20120221

REACTIONS (2)
  - Ischaemic cardiomyopathy [Unknown]
  - Viral cardiomyopathy [Unknown]
